FAERS Safety Report 22182384 (Version 1)
Quarter: 2023Q2

REPORT INFORMATION
  Report Type: Spontaneous
  Country: US (occurrence: US)
  Receive Date: 20230406
  Receipt Date: 20230406
  Transmission Date: 20230722
  Serious: Yes (Death)
  Sender: FDA-Public Use
  Company Number: US-RIGEL Pharmaceuticals, INC-2023OLU000013

PATIENT
  Sex: Male
  Weight: 90.703 kg

DRUGS (16)
  1. REZLIDHIA [Suspect]
     Active Substance: OLUTASIDENIB
     Indication: Acute myeloid leukaemia refractory
     Dosage: 150 MG, BID
     Route: 048
     Dates: start: 20230214, end: 2023
  2. ACYCLOVIR [Concomitant]
     Active Substance: ACYCLOVIR
     Indication: Product used for unknown indication
     Dosage: 400 MG
     Route: 048
     Dates: end: 20230321
  3. AUGMENTIN [Concomitant]
     Active Substance: AMOXICILLIN\CLAVULANATE POTASSIUM
     Indication: Product used for unknown indication
     Dosage: 875-125 MG
     Route: 048
     Dates: end: 20230321
  4. CHLORHEXIDINE [Concomitant]
     Active Substance: CHLORHEXIDINE
     Indication: Product used for unknown indication
     Dosage: 0.12 PERCENT
     Route: 048
     Dates: end: 20230321
  5. CITALOPRAM [Concomitant]
     Active Substance: CITALOPRAM HYDROBROMIDE
     Indication: Product used for unknown indication
     Dosage: 10 MG
     Route: 065
     Dates: end: 20230321
  6. DOCUSATE [Concomitant]
     Active Substance: DOCUSATE
     Indication: Product used for unknown indication
     Dosage: 100 MG
     Route: 065
     Dates: end: 20230321
  7. ALBUTEROL\IPRATROPIUM [Concomitant]
     Active Substance: ALBUTEROL\IPRATROPIUM
     Indication: Product used for unknown indication
     Dosage: UNK
     Dates: end: 20230321
  8. PROBIOTIC [BIFIDOBACTERIUM INFANTIS;LACTOBACILLUS ACIDOPHILUS] [Concomitant]
     Indication: Product used for unknown indication
     Dosage: UNK, QD
     Route: 048
     Dates: end: 20230321
  9. MIRALAX [Concomitant]
     Active Substance: POLYETHYLENE GLYCOL 3350
     Indication: Product used for unknown indication
     Dosage: 17 MG
     Route: 048
     Dates: end: 20230321
  10. ONDANSETRON [Concomitant]
     Active Substance: ONDANSETRON
     Indication: Product used for unknown indication
     Dosage: 8 MG
     Route: 048
     Dates: end: 20230321
  11. POSACONAZOLE [Concomitant]
     Active Substance: POSACONAZOLE
     Indication: Product used for unknown indication
     Dosage: 100 MG
     Route: 048
     Dates: end: 20230321
  12. PROVENTIL HFA [Concomitant]
     Active Substance: ALBUTEROL SULFATE
     Indication: Product used for unknown indication
     Dosage: UNK
     Dates: end: 20230321
  13. VITAMINS [Concomitant]
     Active Substance: VITAMINS
     Indication: Product used for unknown indication
     Dosage: UNK
     Route: 048
     Dates: end: 20230321
  14. TRAMADOL [Concomitant]
     Active Substance: TRAMADOL
     Indication: Product used for unknown indication
     Dosage: 100 MG
     Route: 048
     Dates: end: 20230321
  15. VENCLEXTA [Concomitant]
     Active Substance: VENETOCLAX
     Indication: Product used for unknown indication
     Dosage: 100 MG
     Route: 048
     Dates: end: 20230321
  16. VORICONAZOLE [Concomitant]
     Active Substance: VORICONAZOLE
     Indication: Product used for unknown indication
     Dosage: 200 MG
     Route: 048
     Dates: end: 20230321

REACTIONS (1)
  - Disease progression [Fatal]

NARRATIVE: CASE EVENT DATE: 20230101
